FAERS Safety Report 13554517 (Version 6)
Quarter: 2021Q2

REPORT INFORMATION
  Report Type: Spontaneous
  Country: US (occurrence: US)
  Receive Date: 20170517
  Receipt Date: 20210526
  Transmission Date: 20210716
  Serious: Yes (Hospitalization, Other)
  Sender: FDA-Public Use
  Company Number: US-PFIZER INC-2017209103

PATIENT
  Age: 74 Year
  Sex: Female

DRUGS (1)
  1. XELJANZ [Suspect]
     Active Substance: TOFACITINIB CITRATE
     Indication: RHEUMATOID ARTHRITIS
     Dosage: 5 MG, UNK

REACTIONS (10)
  - Fall [Recovering/Resolving]
  - Hip fracture [Recovering/Resolving]
  - Pain [Unknown]
  - Blepharitis [Unknown]
  - Pneumonia [Unknown]
  - Escherichia sepsis [Recovering/Resolving]
  - Feeling abnormal [Unknown]
  - Influenza [Unknown]
  - Eye infection [Unknown]
  - Hypoacusis [Unknown]

NARRATIVE: CASE EVENT DATE: 2021
